FAERS Safety Report 4988121-6 (Version None)
Quarter: 2006Q2

REPORT INFORMATION
  Report Type: 
  Country: None (occurrence: None)
  Receive Date: 20060425
  Receipt Date: 20060418
  Transmission Date: 20061013
  Serious: Yes (Other)
  Sender: FDA-Public Use
  Company Number: GBWYE562019APR06

PATIENT
  Sex: Male

DRUGS (1)
  1. EFFEXOR [Suspect]
     Dosage: 75 MG 2X PER 1 DAY TRANSPLACENTAL
     Route: 064

REACTIONS (3)
  - CONGENITAL ANOMALIES OF EAR OSSICLES [None]
  - DRUG EXPOSURE DURING PREGNANCY [None]
  - EXTERNAL AUDITORY CANAL ATRESIA [None]
